FAERS Safety Report 6750579-X (Version None)
Quarter: 2010Q2

REPORT INFORMATION
  Report Type: 
  Country: None (occurrence: None)
  Receive Date: 20100601
  Receipt Date: 20100518
  Transmission Date: 20101027
  Serious: Yes (Hospitalization, Disabling)
  Sender: FDA-Public Use
  Company Number: JP-MYLANLABS-2010S1008747

PATIENT
  Age: 35 Year
  Sex: Female

DRUGS (1)
  1. ACYCLOVIR SODIUM [Suspect]
     Indication: ENCEPHALITIS HERPES
     Route: 042

REACTIONS (1)
  - CEREBRAL HAEMORRHAGE [None]
